FAERS Safety Report 8952691 (Version 3)
Quarter: 2013Q2

REPORT INFORMATION
  Report Type: Spontaneous
  Country: JP (occurrence: JP)
  Receive Date: 20121205
  Receipt Date: 20130505
  Transmission Date: 20140414
  Serious: No
  Sender: FDA-Public Use
  Company Number: JP-B.I. PHARMACEUTICALS,INC./RIDGEFIELD-2012-BI-02032NB

PATIENT
  Age: 70 Year
  Sex: Female

DRUGS (3)
  1. TRAZENTA [Suspect]
     Dosage: 5 MG
     Route: 048
  2. CALBLOCK [Suspect]
     Route: 048
  3. GLACTIV [Concomitant]

REACTIONS (1)
  - Abdominal distension [Unknown]
